FAERS Safety Report 24010275 (Version 1)
Quarter: 2024Q2

REPORT INFORMATION
  Report Type: Spontaneous
  Country: CA (occurrence: CA)
  Receive Date: 20240625
  Receipt Date: 20240625
  Transmission Date: 20240716
  Serious: Yes (Other)
  Sender: FDA-Public Use
  Company Number: CA-PFIZER INC-202400196833

PATIENT
  Age: 82 Year
  Sex: Male

DRUGS (2)
  1. VYNDAMAX [Suspect]
     Active Substance: TAFAMIDIS
     Indication: Cardiac amyloidosis
     Dosage: 61 MG, 1X/DAY
     Route: 048
     Dates: start: 20240531
  2. PROBIOTICS NOS [Concomitant]
     Active Substance: PROBIOTICS NOS
     Dosage: UNK

REACTIONS (8)
  - Oral candidiasis [Recovering/Resolving]
  - Weight decreased [Unknown]
  - Insomnia [Unknown]
  - Oral infection [Unknown]
  - Decreased appetite [Unknown]
  - Stomatitis [Unknown]
  - Glossitis [Unknown]
  - Ear pain [Unknown]

NARRATIVE: CASE EVENT DATE: 20240601
